FAERS Safety Report 7142378-4 (Version None)
Quarter: 2010Q4

REPORT INFORMATION
  Report Type: 
  Country: None (occurrence: None)
  Receive Date: 20101207
  Receipt Date: 20101129
  Transmission Date: 20110411
  Serious: Yes (Hospitalization, Other)
  Sender: FDA-Public Use
  Company Number: US-ELI_LILLY_AND_COMPANY-US201009005658

PATIENT
  Sex: Female

DRUGS (22)
  1. FORTEO [Suspect]
     Indication: OSTEOPOROSIS
     Dosage: 20 UG, DAILY (1/D)
  2. PREDNISONE [Concomitant]
     Dosage: 14 MG, UNK
  3. PREDNISONE [Concomitant]
     Dosage: 30 MG, UNK
  4. PREDNISONE [Concomitant]
     Dosage: 10 MG, 2/D
     Route: 048
  5. NEURONTIN [Concomitant]
     Dosage: 100 MG, UNK
  6. PLAVIX [Concomitant]
     Dosage: 75 MG, UNK
  7. OXYCODONE HCL [Concomitant]
     Dosage: 5 MG, AS NEEDED
     Route: 048
  8. TOPROL-XL [Concomitant]
  9. FOLIC ACID [Concomitant]
     Dosage: 1 MG, UNK
  10. PROTONIX [Concomitant]
  11. PROZAC [Concomitant]
  12. ARICEPT [Concomitant]
     Dosage: 10 MG, UNK
  13. ISOSORBIDE DINITRATE [Concomitant]
     Dosage: 30 MG, UNK
     Route: 048
  14. ASPIRIN [Concomitant]
     Dosage: 81 MG, UNK
     Route: 048
  15. LIPITOR [Concomitant]
  16. COZAAR [Concomitant]
     Dosage: 50 MG, DAILY (1/D)
  17. AMBIEN [Concomitant]
  18. CALCIUM CARBONATE/VITAMIN D3 [Concomitant]
     Dosage: UNK, DAILY (1/D)
  19. ZOLEDRONIC ACID [Concomitant]
     Dosage: 5 MG, UNK
  20. NYSTATIN [Concomitant]
  21. METHOTREXATE [Concomitant]
  22. BACTRIM DS [Concomitant]

REACTIONS (12)
  - APHAGIA [None]
  - ASTHENIA [None]
  - CARDIOMEGALY [None]
  - DEHYDRATION [None]
  - FATIGUE [None]
  - HEART RATE IRREGULAR [None]
  - IDIOPATHIC PULMONARY FIBROSIS [None]
  - INTERSTITIAL LUNG DISEASE [None]
  - MALAISE [None]
  - MYOCARDIAL ISCHAEMIA [None]
  - POLYMYALGIA RHEUMATICA [None]
  - TEMPORAL ARTERITIS [None]
